FAERS Safety Report 4810357-5 (Version None)
Quarter: 2005Q4

REPORT INFORMATION
  Report Type: 
  Country: None (occurrence: None)
  Receive Date: 20051026
  Receipt Date: 20051007
  Transmission Date: 20060501
  Serious: Yes (Other)
  Sender: FDA-Public Use
  Company Number: US-ROCHE-420528

PATIENT
  Age: 52 Year
  Sex: Female
  Weight: 85.3 kg

DRUGS (3)
  1. XENICAL [Suspect]
     Route: 048
     Dates: start: 20000615, end: 20050115
  2. XENICAL [Suspect]
     Route: 048
     Dates: start: 20050415
  3. SYNTHROID [Concomitant]
     Indication: HYPOTHYROIDISM
     Dosage: PATIENT HAS BEEN TAKING THIS DRUG FOR ^YEARS^.
     Route: 048

REACTIONS (2)
  - INTERVERTEBRAL DISC DEGENERATION [None]
  - WEIGHT INCREASED [None]
